FAERS Safety Report 4952837-8 (Version None)
Quarter: 2006Q1

REPORT INFORMATION
  Report Type: 
  Country: None (occurrence: None)
  Receive Date: 20060324
  Receipt Date: 20060223
  Transmission Date: 20060701
  Serious: Yes (Hospitalization, Congenital Anomaly)
  Sender: FDA-Public Use
  Company Number: 2006UW03292

PATIENT
  Age: 46 Year
  Sex: Female

DRUGS (7)
  1. SEROQUEL [Suspect]
     Indication: AFFECTIVE DISORDER
     Route: 048
  2. SEROQUEL [Suspect]
     Route: 048
  3. CLONAZEPAM [Concomitant]
     Route: 048
  4. DIDROCAL [Concomitant]
     Indication: OSTEOPOROSIS
     Route: 048
  5. TYLENOL W/ CODEINE NO. 4 [Concomitant]
     Indication: PAIN
     Route: 048
  6. SYNTHROID [Concomitant]
     Indication: THYROID DISORDER
  7. SERC [Concomitant]
     Indication: VERTIGO
     Dates: start: 20060214

REACTIONS (8)
  - DEHYDRATION [None]
  - EAR INFECTION [None]
  - HEART RATE INCREASED [None]
  - INFLUENZA [None]
  - PHARYNGOLARYNGEAL PAIN [None]
  - SINUSITIS [None]
  - VERTIGO [None]
  - VIRAL INFECTION [None]
